FAERS Safety Report 8107731-0 (Version None)
Quarter: 2012Q1

REPORT INFORMATION
  Report Type: 
  Country: None (occurrence: None)
  Receive Date: 20120202
  Receipt Date: 20120130
  Transmission Date: 20120608
  Serious: Yes (Death, Hospitalization)
  Sender: FDA-Public Use
  Company Number: JP-JNJFOC-20101208785

PATIENT
  Sex: Female
  Weight: 49 kg

DRUGS (15)
  1. DOXORUBICIN HCL [Suspect]
     Dosage: CYCLE 2
     Route: 042
     Dates: start: 20091119, end: 20091119
  2. DOXORUBICIN HCL [Suspect]
     Dosage: CYCLE 1
     Route: 042
     Dates: start: 20091022, end: 20091022
  3. DOXORUBICIN HCL [Suspect]
     Route: 042
     Dates: start: 20100422, end: 20100422
  4. DOXORUBICIN HCL [Suspect]
     Route: 042
     Dates: start: 20100617, end: 20100617
  5. PRIMPERAN TAB [Concomitant]
     Indication: PROPHYLAXIS
     Route: 048
     Dates: start: 20091022, end: 20091029
  6. DOXORUBICIN HCL [Suspect]
     Route: 042
     Dates: start: 20100722, end: 20100722
  7. SEROTONE [Concomitant]
     Indication: PROPHYLAXIS
     Route: 042
     Dates: start: 20091022
  8. DOXORUBICIN HCL [Suspect]
     Indication: OVARIAN CANCER RECURRENT
     Dosage: CYCLE 5
     Route: 042
     Dates: start: 20100218, end: 20100218
  9. DECADRON [Concomitant]
     Route: 042
     Dates: start: 20091022
  10. DOXORUBICIN HCL [Suspect]
     Dosage: CYCLE 3
     Route: 042
     Dates: start: 20091224, end: 20091224
  11. DOXORUBICIN HCL [Suspect]
     Dosage: CYCLE 6
     Route: 042
     Dates: start: 20100325, end: 20100325
  12. DOXORUBICIN HCL [Suspect]
     Dosage: CYCLE 4
     Route: 042
     Dates: start: 20100121, end: 20110121
  13. DOXORUBICIN HCL [Suspect]
     Route: 042
     Dates: start: 20100520, end: 20100520
  14. PYDOXAL [Concomitant]
     Indication: PROPHYLAXIS
     Dosage: DOSAGE FORM: ENTERIC COATING DRUG
     Route: 048
     Dates: start: 20091022
  15. DECADRON [Concomitant]
     Indication: PROPHYLAXIS
     Route: 048
     Dates: start: 20091022, end: 20091121

REACTIONS (3)
  - OVARIAN CANCER RECURRENT [None]
  - STOMATITIS [None]
  - GASTROINTESTINAL PAIN [None]
